FAERS Safety Report 13729863 (Version 2)
Quarter: 2017Q3

REPORT INFORMATION
  Report Type: Spontaneous
  Country: US (occurrence: US)
  Receive Date: 20170707
  Receipt Date: 20170922
  Transmission Date: 20171127
  Serious: Yes (Death, Other)
  Sender: FDA-Public Use
  Company Number: US-JNJFOC-20170507355

PATIENT
  Age: 73 Year
  Sex: Female

DRUGS (4)
  1. XARELTO [Suspect]
     Active Substance: RIVAROXABAN
     Indication: THROMBOSIS IN DEVICE
     Dosage: 15MG 20MG
     Route: 048
     Dates: start: 20140114, end: 20150310
  2. XARELTO [Suspect]
     Active Substance: RIVAROXABAN
     Indication: DEEP VEIN THROMBOSIS
     Dosage: 15MG 20MG
     Route: 048
     Dates: start: 20140114, end: 20150310
  3. XARELTO [Suspect]
     Active Substance: RIVAROXABAN
     Indication: DEEP VEIN THROMBOSIS
     Route: 048
     Dates: start: 2015, end: 20150417
  4. XARELTO [Suspect]
     Active Substance: RIVAROXABAN
     Indication: THROMBOSIS IN DEVICE
     Route: 048
     Dates: start: 2015, end: 20150417

REACTIONS (5)
  - Haemorrhage [Unknown]
  - Uterine haemorrhage [Unknown]
  - Ecchymosis [Unknown]
  - Haemoptysis [Recovered/Resolved]
  - Increased tendency to bruise [Unknown]

NARRATIVE: CASE EVENT DATE: 20140121
